FAERS Safety Report 24250623 (Version 1)
Quarter: 2024Q3

REPORT INFORMATION
  Report Type: Spontaneous
  Country: CN (occurrence: CN)
  Receive Date: 20240826
  Receipt Date: 20240826
  Transmission Date: 20241017
  Serious: Yes (Hospitalization, Other)
  Sender: JOHNSON AND JOHNSON
  Company Number: CN-BAYER-2024A120200

PATIENT
  Age: 82 Year
  Sex: Female
  Weight: 55 kg

DRUGS (1)
  1. XARELTO [Suspect]
     Active Substance: RIVAROXABAN
     Indication: Pulmonary embolism
     Dosage: 10 MG, BID
     Route: 048
     Dates: start: 20240722, end: 20240808

REACTIONS (9)
  - Coagulopathy [Recovering/Resolving]
  - Cardiac failure [Unknown]
  - Renal failure [Unknown]
  - Hepatic function abnormal [Unknown]
  - Pyrexia [Unknown]
  - Heart rate increased [Unknown]
  - Respiratory rate increased [Unknown]
  - Prescribed underdose [Unknown]
  - Underdose [Unknown]

NARRATIVE: CASE EVENT DATE: 20240722
